FAERS Safety Report 6807733-8 (Version None)
Quarter: 2010Q2

REPORT INFORMATION
  Report Type: 
  Country: None (occurrence: None)
  Receive Date: 20100629
  Receipt Date: 20090108
  Transmission Date: 20101027
  Serious: No
  Sender: FDA-Public Use
  Company Number: US-PFIZER INC-2009154057

PATIENT
  Age: 78 Year
  Sex: Female
  Weight: 52.2 kg

DRUGS (4)
  1. XANAX [Suspect]
     Indication: TREMOR
     Dosage: 0.25MG 1/2 TABLET AT 2:30PM AND 1 TABLET AT 10PM
     Dates: start: 20081210
  2. ALPRAZOLAM [Suspect]
  3. LEXAPRO [Suspect]
     Dates: start: 20081210
  4. LUMIGAN [Concomitant]

REACTIONS (1)
  - INSOMNIA [None]
